FAERS Safety Report 10188350 (Version 1)
Quarter: 2014Q2

REPORT INFORMATION
  Report Type: Spontaneous
  Country: IT (occurrence: FR)
  Receive Date: 20140522
  Receipt Date: 20140522
  Transmission Date: 20141212
  Serious: Yes (Hospitalization)
  Sender: FDA-Public Use
  Company Number: FR-FRI-1000067438

PATIENT
  Age: 84 Year
  Sex: Female

DRUGS (8)
  1. NEBIVOLOL [Suspect]
     Route: 048
     Dates: start: 20140208, end: 20140228
  2. TAHOR [Concomitant]
     Route: 048
  3. EUPANTOL [Concomitant]
  4. LERCAPRESS [Concomitant]
     Route: 048
  5. DUOPLAVIN [Concomitant]
     Route: 048
  6. LANTUS [Concomitant]
  7. DAFALGAN [Concomitant]
  8. LASILIX [Concomitant]

REACTIONS (2)
  - Cardiac failure acute [Recovered/Resolved]
  - Dyspnoea [Recovered/Resolved]
